FAERS Safety Report 9999498 (Version 2)
Quarter: 2014Q1

REPORT INFORMATION
  Report Type: Spontaneous
  Country: US (occurrence: US)
  Receive Date: 20140312
  Receipt Date: 20140312
  Transmission Date: 20141002
  Serious: No
  Sender: FDA-Public Use
  Company Number: US-TEVA-413959USA

PATIENT
  Age: 16 Month
  Sex: Female

DRUGS (1)
  1. AMOXICILLIN [Suspect]
     Dosage: 400/5ML

REACTIONS (5)
  - Hypoaesthesia oral [Unknown]
  - Glossodynia [Unknown]
  - Feeling abnormal [Unknown]
  - Hypophagia [Unknown]
  - Somnolence [Recovering/Resolving]
